FAERS Safety Report 11574708 (Version 3)
Quarter: 2015Q4

REPORT INFORMATION
  Report Type: Spontaneous
  Country: US (occurrence: US)
  Receive Date: 20150930
  Receipt Date: 20151016
  Transmission Date: 20160304
  Serious: No
  Sender: FDA-Public Use
  Company Number: US-PFIZER INC-2015325639

PATIENT
  Age: 65 Year
  Sex: Female
  Weight: 66 kg

DRUGS (1)
  1. PREMARIN [Suspect]
     Active Substance: ESTROGENS, CONJUGATED
     Indication: HYSTERECTOMY
     Dosage: UNK, AS NEEDED
     Route: 067
     Dates: start: 20150922, end: 20150927

REACTIONS (4)
  - Intentional underdose [Unknown]
  - Malaise [Unknown]
  - Vulvovaginal burning sensation [Recovering/Resolving]
  - Headache [Recovering/Resolving]

NARRATIVE: CASE EVENT DATE: 20150922
